FAERS Safety Report 7833220-4 (Version None)
Quarter: 2011Q4

REPORT INFORMATION
  Report Type: 
  Country: None (occurrence: None)
  Receive Date: 20111024
  Receipt Date: 20111020
  Transmission Date: 20120403
  Serious: Yes (Other)
  Sender: FDA-Public Use
  Company Number: US-PFIZER INC-2011254398

PATIENT
  Sex: Female

DRUGS (1)
  1. SOLU-MEDROL [Suspect]
     Dosage: 125 MG, UNK

REACTIONS (4)
  - LOSS OF CONSCIOUSNESS [None]
  - DYSPNOEA [None]
  - VOMITING [None]
  - ASTHENIA [None]
